FAERS Safety Report 21437950 (Version 4)
Quarter: 2022Q4

REPORT INFORMATION
  Report Type: Spontaneous
  Country: JP (occurrence: JP)
  Receive Date: 20221011
  Receipt Date: 20221204
  Transmission Date: 20230112
  Serious: Yes (Other)
  Sender: FDA-Public Use
  Company Number: JP-NOVARTISPH-NVSJ2022JP098778

PATIENT
  Age: 85 Year
  Sex: Female

DRUGS (11)
  1. METFORMIN HYDROCHLORIDE\VILDAGLIPTIN [Suspect]
     Active Substance: METFORMIN HYDROCHLORIDE\VILDAGLIPTIN
     Indication: Type 2 diabetes mellitus
     Dosage: 1 DOSAGE FORM, BID, METFORMIN 50MGVILDAGLIPTIN 250MG
     Route: 048
     Dates: start: 20200203
  2. IMEGLIMIN [Suspect]
     Active Substance: IMEGLIMIN
     Indication: Type 2 diabetes mellitus
     Dosage: 1000 MG, BID
     Route: 048
     Dates: start: 20220901, end: 20220928
  3. REPAGLINIDE [Concomitant]
     Active Substance: REPAGLINIDE
     Indication: Type 2 diabetes mellitus
     Dosage: 1 DOSAGE FORM, TID
     Route: 065
     Dates: start: 20190501
  4. RYZODEG 70/30 [Concomitant]
     Active Substance: INSULIN ASPART\INSULIN DEGLUDEC
     Indication: Type 2 diabetes mellitus
     Dosage: 5 UNIT, QD
     Route: 065
  5. AMLODIPINE BESYLATE\TELMISARTAN [Concomitant]
     Active Substance: AMLODIPINE BESYLATE\TELMISARTAN
     Indication: Hypertension
     Dosage: 1 DOSAGE FORM, QD
     Route: 065
     Dates: start: 20180501
  6. VONOPRAZAN FUMARATE [Concomitant]
     Active Substance: VONOPRAZAN FUMARATE
     Indication: Gastrooesophageal reflux disease
     Dosage: 1 DOSAGE FORM, QD
     Route: 065
     Dates: start: 20180224
  7. MIGLITOL [Concomitant]
     Active Substance: MIGLITOL
     Indication: Type 2 diabetes mellitus
     Dosage: 1 DOSAGE FORM, QD
     Route: 065
     Dates: start: 20190501, end: 20220901
  8. MOSAPRIDE CITRATE [Concomitant]
     Active Substance: MOSAPRIDE CITRATE
     Indication: Gastrooesophageal reflux disease
     Dosage: 1 DOSAGE FORM, BID
     Route: 065
     Dates: start: 20180214
  9. MAGNESIUM OXIDE [Concomitant]
     Active Substance: MAGNESIUM OXIDE
     Indication: Product used for unknown indication
     Dosage: UNK
     Route: 065
     Dates: start: 20220924
  10. MIYA-BM [Concomitant]
     Active Substance: CLOSTRIDIUM BUTYRICUM SPORES STRAIN M-55
     Indication: Product used for unknown indication
     Dosage: UNK
     Route: 065
     Dates: start: 20220924
  11. REBAMIPIDE [Concomitant]
     Active Substance: REBAMIPIDE
     Indication: Product used for unknown indication
     Dosage: UNK
     Route: 065
     Dates: start: 20220924

REACTIONS (16)
  - Dyspepsia [Recovered/Resolved]
  - Arteriosclerosis coronary artery [Unknown]
  - Decreased appetite [Recovered/Resolved]
  - Hypophagia [Recovered/Resolved]
  - Vomiting [Recovered/Resolved]
  - Nausea [Unknown]
  - Dehydration [Recovering/Resolving]
  - Chest discomfort [Recovered/Resolved]
  - Abdominal distension [Recovered/Resolved]
  - Thyroid mass [Unknown]
  - Gastrointestinal wall thickening [Unknown]
  - Hyperglycaemia [Unknown]
  - Lung opacity [Unknown]
  - Chronic gastritis [Unknown]
  - Gastric polyps [Unknown]
  - Hiatus hernia [Unknown]

NARRATIVE: CASE EVENT DATE: 20220901
